FAERS Safety Report 15365003 (Version 1)
Quarter: 2018Q3

REPORT INFORMATION
  Report Type: Spontaneous
  Country: US (occurrence: US)
  Receive Date: 20180910
  Receipt Date: 20180910
  Transmission Date: 20181010
  Serious: No
  Sender: FDA-Public Use
  Company Number: US-GLENMARK PHARMACEUTICALS-2018GMK036786

PATIENT

DRUGS (1)
  1. MOMETASONE FUROATE CREAM USP [Suspect]
     Active Substance: MOMETASONE FUROATE
     Indication: ECZEMA
     Dosage: 1 DF, OD
     Route: 061
     Dates: start: 201806, end: 201807

REACTIONS (4)
  - Alopecia [Not Recovered/Not Resolved]
  - Yellow skin [Recovering/Resolving]
  - Hair colour changes [Not Recovered/Not Resolved]
  - Drug administered to patient of inappropriate age [Unknown]

NARRATIVE: CASE EVENT DATE: 201806
